FAERS Safety Report 8150049-0 (Version None)
Quarter: 2012Q1

REPORT INFORMATION
  Report Type: 
  Country: None (occurrence: None)
  Receive Date: 20120219
  Receipt Date: 20120210
  Transmission Date: 20120608
  Serious: Yes (Hospitalization, Other)
  Sender: FDA-Public Use
  Company Number: US-BRISTOL-MYERS SQUIBB COMPANY-15936081

PATIENT
  Age: 77 Year
  Sex: Female
  Weight: 115 kg

DRUGS (16)
  1. METOPROLOL TARTRATE [Concomitant]
  2. CHERATUSSIN AC [Concomitant]
  3. CARBOPLATIN [Suspect]
     Indication: UTERINE CANCER
     Dosage: LAST ADMID DATE:11AUG11,NO OF COURSES:4,D1 AUC-6 IV OVER 30 MIN ON DAYX6 CYC
     Route: 042
     Dates: start: 20110526
  4. CEPHALEXIN [Concomitant]
  5. VITAMIN D [Concomitant]
  6. ZOFRAN [Concomitant]
  7. IXEMPRA KIT [Suspect]
     Indication: UTERINE CANCER
     Dosage: LAST DOSE:11-AUG-2011 30MG/M2 IV OVER 1HR ON DAY1*6 CYCLES,NO OF COURSES:4,DAY 1
     Route: 042
     Dates: start: 20110526
  8. HYDRALAZINE HCL [Concomitant]
  9. PROCHLORPERAZINE [Concomitant]
  10. LORAZEPAM [Concomitant]
  11. FUROSEMIDE [Concomitant]
  12. ALLOPURINOL [Concomitant]
  13. HALOPERIDOL [Concomitant]
  14. OXYCODONE HCL [Concomitant]
  15. RHUMAB-VEGF [Suspect]
     Indication: UTERINE CANCER
     Dosage: LAST DOSE:07JUL11,NO OF COURSES:4,CYCLE3, D1 15MG/KG IV OVER 30-90MIN ON DAY1*6 CYCLES
     Route: 042
     Dates: start: 20110526, end: 20110707
  16. ADVAIR DISKUS 100/50 [Concomitant]

REACTIONS (14)
  - SINUSITIS [None]
  - BRONCHOSPASM [None]
  - HYPOXIA [None]
  - CEREBROVASCULAR ACCIDENT [None]
  - HYPERTENSION [None]
  - PLATELET COUNT DECREASED [None]
  - BRONCHITIS [None]
  - PLEURAL EFFUSION [None]
  - CONVULSION [None]
  - POSTERIOR REVERSIBLE ENCEPHALOPATHY SYNDROME [None]
  - ATELECTASIS [None]
  - DEPRESSED LEVEL OF CONSCIOUSNESS [None]
  - CARDIAC FAILURE [None]
  - NEUTROPHIL COUNT DECREASED [None]
